FAERS Safety Report 8995928 (Version 1)
Quarter: 2013Q1

REPORT INFORMATION
  Report Type: Report from Study
  Country: US (occurrence: US)
  Receive Date: 20130103
  Receipt Date: 20130103
  Transmission Date: 20140127
  Serious: Yes (Hospitalization)
  Sender: FDA-Public Use
  Company Number: US-BRISTOL-MYERS SQUIBB COMPANY-16207474

PATIENT
  Age: 69 Year
  Sex: Male
  Weight: 86.2 kg

DRUGS (13)
  1. DASATINIB [Suspect]
     Indication: PROSTATE CANCER
     Route: 048
     Dates: start: 20110107, end: 20111027
  2. DOCETAXEL [Suspect]
     Indication: PROSTATE CANCER
     Dosage: D1,D8,Q21
     Route: 042
     Dates: start: 20110107, end: 20111020
  3. PREDNISONE [Suspect]
     Indication: PROSTATE CANCER
     Dosage: 5MG HS
     Route: 048
     Dates: start: 20110107, end: 20111027
  4. CARDIZEM [Concomitant]
     Route: 048
  5. CITALOPRAM [Concomitant]
     Route: 048
  6. MORPHINE [Concomitant]
     Route: 048
  7. DEXAMETHASONE [Concomitant]
     Route: 048
  8. CALCIUM [Concomitant]
     Dosage: 1 DF = 1 TAB
     Route: 048
  9. VICODIN [Concomitant]
     Dosage: TAB
     Route: 048
  10. PROMETHAZINE [Concomitant]
     Route: 048
  11. ZOFRAN [Concomitant]
     Route: 048
  12. IMMODIUM [Concomitant]
     Route: 048
  13. AMBIEN [Concomitant]
     Dosage: PRN
     Route: 048

REACTIONS (5)
  - Stomatitis [Recovered/Resolved with Sequelae]
  - Dehydration [Recovered/Resolved]
  - Toothache [Recovered/Resolved with Sequelae]
  - Nausea [Recovered/Resolved]
  - Vomiting [Recovered/Resolved]
